FAERS Safety Report 10206133 (Version 1)
Quarter: 2014Q2

REPORT INFORMATION
  Report Type: Spontaneous
  Country: US (occurrence: US)
  Receive Date: 20140530
  Receipt Date: 20140530
  Transmission Date: 20141212
  Serious: No
  Sender: FDA-Public Use
  Company Number: US-PFIZER INC-2014148984

PATIENT
  Age: 52 Year
  Sex: Female
  Weight: 95.24 kg

DRUGS (9)
  1. LYRICA [Suspect]
     Indication: NEUROPATHY PERIPHERAL
     Dosage: 25 MG, 2X/DAY
     Dates: start: 20140421
  2. DIGOXIN [Concomitant]
     Indication: CARDIAC DISORDER
     Dosage: 125 MG, DAILY
  3. LIPITOR [Concomitant]
     Indication: BLOOD CHOLESTEROL ABNORMAL
     Dosage: 40 MG, DAILY
  4. ALDACTONE [Concomitant]
     Indication: FLUID RETENTION
     Dosage: 25 MG, DAILY
  5. METOLAZONE [Concomitant]
     Indication: FLUID RETENTION
     Dosage: 5 MG, DAILY
  6. ASPIRIN [Concomitant]
     Indication: MYOCARDIAL INFARCTION
     Dosage: 325 MG, DAILY
  7. COZAAR [Concomitant]
     Indication: BLOOD PRESSURE ABNORMAL
     Dosage: 50 MG, 2X/DAY
  8. CARVEDILOL [Concomitant]
     Indication: BLOOD PRESSURE ABNORMAL
     Dosage: 25 MG, 2X/DAY
  9. CALCIUM [Concomitant]
     Dosage: 600 MG, 2X/DAY

REACTIONS (3)
  - Hypoaesthesia [Not Recovered/Not Resolved]
  - Toothache [Not Recovered/Not Resolved]
  - Gait disturbance [Not Recovered/Not Resolved]
